FAERS Safety Report 8798134 (Version 1)
Quarter: 2012Q4

REPORT INFORMATION
  Report Type: Spontaneous
  Country: US (occurrence: None)
  Receive Date: 20120917
  Receipt Date: 20120917
  Transmission Date: 20130627
  Serious: Yes (Hospitalization)
  Sender: FDA-Public Use
  Company Number: None

PATIENT
  Age: 64 Year
  Sex: Male
  Weight: 101.8 kg

DRUGS (2)
  1. WARFARIN [Suspect]
     Indication: HYPERCOAGULATION
     Route: 048
     Dates: start: 20120325, end: 20120822
  2. CLOPIDOGREL [Suspect]
     Route: 048
     Dates: start: 20120524

REACTIONS (3)
  - Haemoglobin decreased [None]
  - Lower gastrointestinal haemorrhage [None]
  - Polypectomy [None]
